FAERS Safety Report 9339558 (Version 1)
Quarter: 2013Q2

REPORT INFORMATION
  Report Type: Spontaneous
  Country: NL (occurrence: NL)
  Receive Date: 20130610
  Receipt Date: 20130610
  Transmission Date: 20140414
  Serious: Yes (Death, Hospitalization, Other)
  Sender: FDA-Public Use
  Company Number: NL-TEVA-409151ISR

PATIENT
  Age: 43 Year
  Sex: Male

DRUGS (3)
  1. RISPERIDON [Suspect]
     Indication: PSYCHOTIC DISORDER
     Dosage: 3 MG
     Dates: start: 200906, end: 20130308
  2. RISPERIDON [Suspect]
     Dosage: 4 MG
     Dates: start: 20130308, end: 20130312
  3. RISPERIDON [Suspect]
     Dosage: 3 MG
     Dates: start: 20130312, end: 20130320

REACTIONS (17)
  - Cardiac arrest [Fatal]
  - Pulmonary embolism [Fatal]
  - Psychotic disorder [Unknown]
  - Catatonia [Unknown]
  - Dysstasia [Unknown]
  - Abasia [Unknown]
  - Dysuria [Unknown]
  - Speech disorder [Unknown]
  - Toxicity to various agents [Unknown]
  - Weight increased [Not Recovered/Not Resolved]
  - Eating disorder [Unknown]
  - Thrombosis [Unknown]
  - Vomiting [Unknown]
  - Blood glucose abnormal [Unknown]
  - Liver function test abnormal [Unknown]
  - Thrombosis [None]
  - Toxicity to various agents [None]
